FAERS Safety Report 7452353-8 (Version None)
Quarter: 2011Q2

REPORT INFORMATION
  Report Type: 
  Country: None (occurrence: None)
  Receive Date: 20110425
  Receipt Date: 20110418
  Transmission Date: 20111010
  Serious: Yes (Death)
  Sender: FDA-Public Use
  Company Number: 2011-1192

PATIENT
  Age: 62 Year
  Sex: Male

DRUGS (4)
  1. DILOID (ALL OTHER THERAPEUTIC PRODUCTS) [Concomitant]
  2. FLOMAX [Concomitant]
  3. SOMATULINE DEPOT [Suspect]
     Indication: NEUROENDOCRINE TUMOUR
     Dosage: 90 MG (90 MG,1 IN 1 M)
     Dates: start: 20101101
  4. SYNTHROID [Concomitant]

REACTIONS (1)
  - HEPATIC CANCER METASTATIC [None]
